FAERS Safety Report 16816476 (Version 3)
Quarter: 2020Q1

REPORT INFORMATION
  Report Type: Report from Study
  Country: DE (occurrence: DE)
  Receive Date: 20190917
  Receipt Date: 20200319
  Transmission Date: 20200409
  Serious: No
  Sender: FDA-Public Use
  Company Number: DE-ROCHE-2400693

PATIENT
  Age: 57 Year
  Sex: Female
  Weight: 85 kg

DRUGS (14)
  1. COLESTYRAMINE [Concomitant]
     Active Substance: CHOLESTYRAMINE
     Indication: HYPERCHOLESTEROLAEMIA
     Route: 048
  2. SERTRALINE [Concomitant]
     Active Substance: SERTRALINE HYDROCHLORIDE
     Indication: DEPRESSION
     Route: 048
  3. OCRELIZUMAB. [Suspect]
     Active Substance: OCRELIZUMAB
     Indication: MULTIPLE SCLEROSIS
     Dosage: ON 01/MAR/2019, MOST RECENT DOSE
     Route: 042
     Dates: start: 20190215, end: 20190301
  4. URBASON [METHYLPREDNISOLONE] [Concomitant]
     Active Substance: METHYLPREDNISOLONE
     Route: 042
     Dates: start: 20190301, end: 20190301
  5. METOPROLOL. [Concomitant]
     Active Substance: METOPROLOL
     Indication: HYPERTONIA
     Route: 048
  6. URSOFALK [Concomitant]
     Active Substance: URSODIOL
     Indication: CROHN^S DISEASE
     Route: 048
  7. VOMEX [Concomitant]
     Active Substance: DIMENHYDRINATE
     Route: 042
     Dates: start: 20190301, end: 20190301
  8. LISINOPRIL. [Concomitant]
     Active Substance: LISINOPRIL
     Indication: HYPERTONIA
     Route: 048
  9. VENLAFAXINE [Concomitant]
     Active Substance: VENLAFAXINE HYDROCHLORIDE
     Indication: DEPRESSION
     Route: 048
  10. AZATHIOPRINE. [Concomitant]
     Active Substance: AZATHIOPRINE
     Route: 065
     Dates: start: 2013, end: 201812
  11. PARACETAMOL [Concomitant]
     Active Substance: ACETAMINOPHEN
     Route: 042
     Dates: start: 20190301, end: 20190301
  12. PARACETAMOL [Concomitant]
     Active Substance: ACETAMINOPHEN
     Route: 042
     Dates: start: 20190215, end: 20190215
  13. VOMEX [Concomitant]
     Active Substance: DIMENHYDRINATE
     Route: 042
     Dates: start: 20190215, end: 20190215
  14. URBASON [METHYLPREDNISOLONE] [Concomitant]
     Active Substance: METHYLPREDNISOLONE
     Route: 042
     Dates: start: 20190215, end: 20190215

REACTIONS (1)
  - Skin mass [Recovered/Resolved with Sequelae]

NARRATIVE: CASE EVENT DATE: 201903
